FAERS Safety Report 6620763-4 (Version None)
Quarter: 2010Q1

REPORT INFORMATION
  Report Type: 
  Country: None (occurrence: None)
  Receive Date: 20100309
  Receipt Date: 20100224
  Transmission Date: 20100710
  Serious: Yes (Other)
  Sender: FDA-Public Use
  Company Number: US-PFIZER INC-2010024735

PATIENT
  Sex: Female

DRUGS (1)
  1. CABERGOLINE [Suspect]

REACTIONS (3)
  - BLOOD PRESSURE ABNORMAL [None]
  - MOOD ALTERED [None]
  - WEIGHT INCREASED [None]
